FAERS Safety Report 21193972 (Version 1)
Quarter: 2022Q3

REPORT INFORMATION
  Report Type: Spontaneous
  Country: NL (occurrence: NL)
  Receive Date: 20220810
  Receipt Date: 20220810
  Transmission Date: 20221027
  Serious: Yes (Hospitalization)
  Sender: FDA-Public Use
  Company Number: None

PATIENT
  Sex: Female
  Weight: 70 kg

DRUGS (8)
  1. CLOZAPINE [Suspect]
     Active Substance: CLOZAPINE
     Indication: Product used for unknown indication
     Dosage: 150MG PER DAY
     Dates: start: 2020, end: 20210801
  2. CLOZAPINE [Concomitant]
     Active Substance: CLOZAPINE
  3. METOPROLOL [Concomitant]
     Active Substance: METOPROLOL
     Dosage: STRENGTH 1 MG
  4. NORTRIPTYLINE [Concomitant]
     Active Substance: NORTRIPTYLINE
     Dosage: STRENGTH 10 MG
  5. AKINETON [Concomitant]
     Active Substance: BIPERIDEN HYDROCHLORIDE
     Dosage: STRENGTH 2 MG
  6. LORAZEPAM [Concomitant]
     Active Substance: LORAZEPAM
  7. MOVICOLON [Concomitant]
     Active Substance: POLYETHYLENE GLYCOL 3350\POTASSIUM CHLORIDE\SODIUM BICARBONATE\SODIUM CHLORIDE
  8. Microlax [Concomitant]

REACTIONS (1)
  - Dysphemia [Recovered/Resolved]
